FAERS Safety Report 21354994 (Version 1)
Quarter: 2022Q3

REPORT INFORMATION
  Report Type: Spontaneous
  Country: US (occurrence: None)
  Receive Date: 20220920
  Receipt Date: 20220920
  Transmission Date: 20221027
  Serious: Yes (Other)
  Sender: FDA-Public Use
  Company Number: None

PATIENT
  Age: 56 Year
  Sex: Male
  Weight: 101.25 kg

DRUGS (3)
  1. PAXLOVID [Suspect]
     Active Substance: NIRMATRELVIR\RITONAVIR
     Indication: COVID-19
     Dosage: OTHER QUANTITY : 3 TABLET(S);?FREQUENCY : TWICE A DAY;?
     Route: 048
     Dates: start: 20220918, end: 20220920
  2. resmed [Concomitant]
  3. DEVICE [Concomitant]
     Active Substance: DEVICE

REACTIONS (3)
  - Abdominal pain upper [None]
  - Oropharyngeal pain [None]
  - Dysphagia [None]

NARRATIVE: CASE EVENT DATE: 20220920
